FAERS Safety Report 6417805-8 (Version None)
Quarter: 2009Q4

REPORT INFORMATION
  Report Type: 
  Country: None (occurrence: None)
  Receive Date: 20091027
  Receipt Date: 20091027
  Transmission Date: 20100525
  Serious: Yes (Life-Threatening, Hospitalization)
  Sender: FDA-Public Use
  Company Number: None

PATIENT
  Age: 54 Year
  Sex: Female

DRUGS (8)
  1. LISINOPRIL [Suspect]
     Indication: HYPERTENSION
     Dosage: 20MG PO QD
     Route: 048
  2. ASPIRIN [Concomitant]
  3. FERROUS SULFATE TAB [Concomitant]
  4. GLIPIZIDE [Concomitant]
  5. LOVASTATIN [Concomitant]
  6. METFORMIN HCL [Concomitant]
  7. NIFEDIPINE [Concomitant]
  8. SYNTHROID [Concomitant]

REACTIONS (2)
  - COUGH [None]
  - SWOLLEN TONGUE [None]
